FAERS Safety Report 7531105-4 (Version None)
Quarter: 2011Q2

REPORT INFORMATION
  Report Type: 
  Country: None (occurrence: None)
  Receive Date: 20110527
  Receipt Date: 20110519
  Transmission Date: 20111010
  Serious: Yes (Hospitalization)
  Sender: FDA-Public Use
  Company Number: 2011SP023002

PATIENT
  Age: 85 Year
  Sex: Male

DRUGS (11)
  1. INTRON A [Suspect]
     Indication: RENAL CANCER
     Dosage: 2700 KIU; QAM;SC
     Route: 058
     Dates: start: 20110218, end: 20110218
  2. AVASTIN [Suspect]
     Indication: RENAL CANCER
     Dosage: 670 MG; QD; IV
     Route: 042
     Dates: start: 20110218, end: 20110218
  3. PREVISCAN [Concomitant]
  4. RABEPRAZOLE SODIUM [Concomitant]
  5. ONDANSETRON [Concomitant]
  6. CRESTOR [Concomitant]
  7. TRAMADOL HCL [Concomitant]
  8. ACETAMINOPHEN [Concomitant]
  9. ACETAMINOPHEN [Concomitant]
  10. FORLAX [Concomitant]
  11. RAMIPRIL [Concomitant]

REACTIONS (4)
  - TACHYCARDIA [None]
  - CHOKING [None]
  - BLOOD PRESSURE DECREASED [None]
  - ATRIAL FIBRILLATION [None]
